FAERS Safety Report 5866274-5 (Version None)
Quarter: 2008Q3

REPORT INFORMATION
  Report Type: 
  Country: None (occurrence: None)
  Receive Date: 20080829
  Receipt Date: 20080825
  Transmission Date: 20090109
  Serious: Yes (Other)
  Sender: FDA-Public Use
  Company Number: JP-PFIZER INC-2008071295

PATIENT
  Age: 74 Year
  Sex: Male

DRUGS (5)
  1. SOLANAX [Suspect]
     Indication: IRRITABLE BOWEL SYNDROME
     Dosage: DAILY DOSE:.4MG
     Route: 048
  2. AVISHOT [Concomitant]
     Indication: BENIGN PROSTATIC HYPERPLASIA
     Route: 048
  3. MAGNESIUM OXIDE [Concomitant]
     Indication: CONSTIPATION
     Route: 048
  4. SEREVENT [Concomitant]
     Indication: CHRONIC OBSTRUCTIVE PULMONARY DISEASE
     Route: 055
  5. FLUTIDE [Concomitant]
     Indication: CHRONIC OBSTRUCTIVE PULMONARY DISEASE
     Route: 055

REACTIONS (3)
  - CONSTIPATION [None]
  - DYSURIA [None]
  - RESPIRATORY DEPRESSION [None]
